FAERS Safety Report 7536457-7 (Version None)
Quarter: 2011Q2

REPORT INFORMATION
  Report Type: 
  Country: None (occurrence: None)
  Receive Date: 20110608
  Receipt Date: 20110608
  Transmission Date: 20111010
  Serious: Yes (Death)
  Sender: FDA-Public Use
  Company Number: None

PATIENT
  Age: 69 Year
  Sex: Male

DRUGS (8)
  1. REVLIMID [Suspect]
     Indication: MYELODYSPLASTIC SYNDROME
     Dosage: REVLIMID 10 MG DAILY X21D/28D ORALLY
     Route: 048
     Dates: start: 20110501
  2. TAMSULOSIN HCL [Concomitant]
  3. PREDNISONE [Concomitant]
  4. ATENOLOL [Concomitant]
  5. LOSARTAN POTASSIUM [Concomitant]
  6. AMLODIPINE [Concomitant]
  7. FAMOTIDINE [Concomitant]
  8. NOVOLIN R [Concomitant]

REACTIONS (2)
  - PNEUMONIA [None]
  - RESPIRATORY DISTRESS [None]
